FAERS Safety Report 9120524 (Version 2)
Quarter: 2013Q4

REPORT INFORMATION
  Report Type: Spontaneous
  Country: US (occurrence: US)
  Receive Date: 20130226
  Receipt Date: 20131226
  Transmission Date: 20140711
  Serious: Yes (Death)
  Sender: FDA-Public Use
  Company Number: US-B.I. PHARMACEUTICALS,INC./RIDGEFIELD-2013-BI-04809BP

PATIENT
  Age: 85 Year
  Sex: Female

DRUGS (12)
  1. PRADAXA [Suspect]
     Indication: ATRIAL FIBRILLATION
     Dosage: 300 MG
     Route: 048
     Dates: start: 20110117, end: 20110303
  2. COMPAZINE [Concomitant]
     Indication: NAUSEA
     Route: 048
  3. TOPROL XL [Concomitant]
     Dosage: 25 MG
     Route: 048
  4. AMLODIPINE BESYLATE [Concomitant]
     Dosage: 5 MG
     Route: 048
  5. CALCIUM + D [Concomitant]
  6. FOLIC ACID [Concomitant]
     Dosage: 1 MG
     Route: 048
  7. HYDROCHLOROTHIAZIDE [Concomitant]
     Dosage: 12.5 MG
     Route: 048
  8. LISINOPRIL [Concomitant]
     Dosage: 10 MG
     Route: 048
  9. LYRICA [Concomitant]
     Dosage: 100 MG
     Route: 048
     Dates: start: 20110208
  10. ROXANOL [Concomitant]
     Route: 048
     Dates: start: 20110208
  11. ATIVAN [Concomitant]
     Indication: PAIN
     Route: 048
     Dates: start: 20110225
  12. IBUPROFEN [Concomitant]
     Dosage: 1200 MG
     Route: 048

REACTIONS (1)
  - Rectal haemorrhage [Fatal]
